FAERS Safety Report 5409931-7 (Version None)
Quarter: 2007Q3

REPORT INFORMATION
  Report Type: 
  Country: None (occurrence: None)
  Receive Date: 20070809
  Receipt Date: 20070628
  Transmission Date: 20080115
  Serious: Yes (Hospitalization)
  Sender: FDA-Public Use
  Company Number: AU-PFIZER INC-2007023964

PATIENT
  Sex: Male
  Weight: 15 kg

DRUGS (1)
  1. DILANTIN [Suspect]
     Indication: EPILEPSY
     Route: 048

REACTIONS (1)
  - CONVULSION [None]
